FAERS Safety Report 11693840 (Version 1)
Quarter: 2015Q4

REPORT INFORMATION
  Report Type: Spontaneous
  Country: US (occurrence: US)
  Receive Date: 20151103
  Receipt Date: 20151103
  Transmission Date: 20160304
  Serious: Yes (Other)
  Sender: FDA-Public Use
  Company Number: US-PFIZER INC-2015368809

PATIENT
  Sex: Female

DRUGS (5)
  1. DOPAMINE [Concomitant]
     Active Substance: DOPAMINE\DOPAMINE HYDROCHLORIDE
     Indication: URINE OUTPUT DECREASED
     Dosage: 5 ?G/KG/MIN
  2. VECURONIUM BROMIDE. [Suspect]
     Active Substance: VECURONIUM BROMIDE
     Indication: NEUROMUSCULAR BLOCKING THERAPY
     Dosage: 0.1 MG/KG/H
     Route: 041
  3. GENTAMICIN SULFATE. [Suspect]
     Active Substance: GENTAMICIN SULFATE
     Indication: SEPSIS
     Dosage: 5 MG/KG, EVERY 48 HRS
     Route: 042
  4. HYDROCORTISONE SODIUM SUCCINATE [Suspect]
     Active Substance: HYDROCORTISONE SODIUM SUCCINATE
     Indication: URINE OUTPUT DECREASED
     Dosage: 0.25 MG/KG, EVERY 6 HOURS
     Route: 042
  5. AMPICILLIN [Concomitant]
     Active Substance: AMPICILLIN
     Indication: SEPSIS
     Dosage: 100 MG/KG, EVERY 12 HOURS
     Route: 042

REACTIONS (1)
  - Neuromuscular blockade [Not Recovered/Not Resolved]
